FAERS Safety Report 9596155 (Version 5)
Quarter: 2013Q4

REPORT INFORMATION
  Report Type: Report from Study
  Country: US (occurrence: US)
  Receive Date: 20131004
  Receipt Date: 20131115
  Transmission Date: 20140711
  Serious: Yes (Other)
  Sender: FDA-Public Use
  Company Number: US-PFIZER INC-2013277062

PATIENT
  Age: 69 Year
  Sex: Male
  Weight: 119.5 kg

DRUGS (19)
  1. AXITINIB [Suspect]
     Indication: COLORECTAL CANCER
     Dosage: 5 MG TWICE DAILY X 14 DAYS
     Route: 048
     Dates: start: 20130904, end: 20130917
  2. AXITINIB [Suspect]
     Dosage: 5 MG TWICE DAILY X 14 DAYS
     Route: 048
     Dates: start: 20130925, end: 20130925
  3. AMLODIPINE [Concomitant]
     Indication: HYPERTENSION
     Dosage: 10 MG, DAILY
     Route: 048
     Dates: start: 2006
  4. ASPIRIN [Concomitant]
     Indication: ANTICOAGULANT THERAPY
     Dosage: 81 MG, DAILY
     Route: 048
     Dates: start: 2010
  5. CALCIUM AND VITAMIN D [Concomitant]
     Indication: SUPPLEMENTATION THERAPY
     Dosage: 1 DF(1 TABLET) DAILY
     Route: 048
     Dates: start: 2010
  6. GEMFIBROZIL [Concomitant]
     Indication: HYPERCHOLESTEROLAEMIA
     Dosage: 600 MG, 2X/DAY
     Route: 048
     Dates: start: 2008
  7. LANTUS [Concomitant]
     Indication: DIABETES MELLITUS
     Dosage: 100 UNIT/ML DAILY
     Route: 048
     Dates: start: 201207
  8. LEVOTHYROXINE [Concomitant]
     Indication: HYPOTHYROIDISM
     Dosage: 100 MCG DAILY
     Route: 048
     Dates: end: 20130828
  9. LEVOTHYROXINE [Concomitant]
     Dosage: 112 MCG DAILY
     Route: 048
     Dates: start: 20130829
  10. LOSARTAN [Concomitant]
     Indication: HYPERTENSION
     Dosage: 50 MG, 2X/DAY
     Route: 048
     Dates: start: 2010
  11. METFORMIN [Concomitant]
     Indication: DIABETES MELLITUS
     Dosage: 1000 MG, 2X/DAY
     Route: 048
     Dates: start: 2010
  12. NIACIN [Concomitant]
     Indication: SUPPLEMENTATION THERAPY
     Dosage: 500 MG, DAILY
     Route: 048
     Dates: start: 2008
  13. TRIAMTERENE [Concomitant]
     Indication: OEDEMA
     Dosage: 25 MG, AS NEEDED
     Route: 048
     Dates: start: 2011
  14. LATANOPROST [Concomitant]
     Indication: GLAUCOMA
     Dosage: 1 DF (1 DROP) RT EYE DAILY
     Route: 047
     Dates: start: 2012
  15. SIMETHICONE [Concomitant]
     Indication: FLATULENCE
     Dosage: 160 MG, AS NEEDED
     Route: 048
     Dates: start: 201306
  16. TYLENOL [Concomitant]
     Indication: MUSCULOSKELETAL PAIN
     Dosage: 650 MG, AS NEEDED
     Route: 048
     Dates: start: 2006
  17. PEPCID [Concomitant]
     Indication: URTICARIA
     Dosage: 30ML, PRN
     Route: 048
     Dates: start: 20130909
  18. CLARITIN [Concomitant]
     Indication: URTICARIA
     Dosage: 1 PILL, AS NEEDED
     Route: 048
     Dates: start: 20130909
  19. FISH OIL [Concomitant]
     Indication: SUPPLEMENTATION THERAPY
     Dosage: 2000 MG DAILY
     Route: 048
     Dates: start: 2010

REACTIONS (1)
  - Electrocardiogram QT prolonged [Recovered/Resolved]
